FAERS Safety Report 9420519 (Version 1)
Quarter: 2013Q3

REPORT INFORMATION
  Report Type: Spontaneous
  Country: US (occurrence: US)
  Receive Date: 20130725
  Receipt Date: 20130725
  Transmission Date: 20140515
  Serious: No
  Sender: FDA-Public Use
  Company Number: US-ABBOTT-13P-163-1089731-00

PATIENT
  Age: 57 Year
  Sex: Female
  Weight: 79.45 kg

DRUGS (2)
  1. SYNTHROID [Suspect]
     Indication: BASEDOW^S DISEASE
     Dates: start: 1990
  2. MICARDIS [Concomitant]
     Indication: HYPERTENSION

REACTIONS (1)
  - Rash [Not Recovered/Not Resolved]
